FAERS Safety Report 6617854-0 (Version None)
Quarter: 2010Q1

REPORT INFORMATION
  Report Type: 
  Country: None (occurrence: None)
  Receive Date: 20100308
  Receipt Date: 20100225
  Transmission Date: 20100710
  Serious: Yes (Other)
  Sender: FDA-Public Use
  Company Number: US-AMGEN-QUU359311

PATIENT
  Sex: Female
  Weight: 80.8 kg

DRUGS (4)
  1. ENBREL [Suspect]
     Indication: RHEUMATOID ARTHRITIS
     Route: 058
     Dates: start: 20081215, end: 20090301
  2. CLARITIN [Concomitant]
     Route: 048
  3. VITAMIN TAB [Concomitant]
  4. VICODIN [Concomitant]
     Route: 048

REACTIONS (13)
  - CYSTITIS [None]
  - DEPRESSION [None]
  - DIZZINESS [None]
  - DRUG INEFFECTIVE [None]
  - FATIGUE [None]
  - FEELING ABNORMAL [None]
  - FLUSHING [None]
  - INJECTION SITE HAEMATOMA [None]
  - INJECTION SITE PAIN [None]
  - PALATAL OEDEMA [None]
  - RHEUMATOID ARTHRITIS [None]
  - SINUSITIS [None]
  - SYMPHYSIOLYSIS [None]
